FAERS Safety Report 25957634 (Version 3)
Quarter: 2025Q4

REPORT INFORMATION
  Report Type: Report from Study
  Country: US (occurrence: US)
  Receive Date: 20251024
  Receipt Date: 20251212
  Transmission Date: 20260118
  Serious: No
  Sender: MALLINCKRODT
  Company Number: US-MALLINCKRODT-MNK202506211

PATIENT
  Age: 23 Year
  Sex: Male

DRUGS (2)
  1. CORTICOTROPIN [Suspect]
     Active Substance: CORTICOTROPIN
     Indication: Dermatomyositis
     Dosage: 80 UNITS
     Route: 058
  2. CORTICOTROPIN [Suspect]
     Active Substance: CORTICOTROPIN
     Indication: Dermatomyositis

REACTIONS (7)
  - Urticaria [Unknown]
  - Needle track marks [Unknown]
  - Aphthous ulcer [Unknown]
  - Infection [Unknown]
  - Asthenia [Unknown]
  - Injection site discolouration [Unknown]
  - Injection site scar [Unknown]
